FAERS Safety Report 22071969 (Version 1)
Quarter: 2023Q1

REPORT INFORMATION
  Report Type: Spontaneous
  Country: NL (occurrence: NL)
  Receive Date: 20230308
  Receipt Date: 20230308
  Transmission Date: 20230418
  Serious: Yes (Other)
  Sender: FDA-Public Use
  Company Number: None

PATIENT
  Sex: Male
  Weight: 80 kg

DRUGS (1)
  1. AIMOVIG [Suspect]
     Active Substance: ERENUMAB-AOOE
     Indication: Migraine
     Dosage: 1 DOSAGE FORM, Q4W (1X PER 4 WKN, PEN)
     Route: 065
     Dates: start: 20220901, end: 20230224

REACTIONS (2)
  - Erectile dysfunction [Unknown]
  - Constipation [Unknown]
